FAERS Safety Report 8400770-1 (Version None)
Quarter: 2012Q2

REPORT INFORMATION
  Report Type: 
  Country: None (occurrence: None)
  Receive Date: 20120531
  Receipt Date: 20120523
  Transmission Date: 20120825
  Serious: Yes (Other)
  Sender: FDA-Public Use
  Company Number: US-TEVA-339812USA

PATIENT
  Sex: Female

DRUGS (1)
  1. FENTORA [Suspect]
     Indication: MIGRAINE
     Route: 002

REACTIONS (4)
  - PAIN [None]
  - SUICIDAL IDEATION [None]
  - LACERATION [None]
  - OFF LABEL USE [None]
